FAERS Safety Report 21199911 (Version 1)
Quarter: 2022Q3

REPORT INFORMATION
  Report Type: Spontaneous
  Country: US (occurrence: None)
  Receive Date: 20220810
  Receipt Date: 20220810
  Transmission Date: 20221026
  Serious: Yes (Life-Threatening)
  Sender: FDA-Public Use
  Company Number: None

PATIENT
  Age: 54 Year
  Sex: Female

DRUGS (8)
  1. MOUNJARO [Suspect]
     Active Substance: TIRZEPATIDE
     Indication: Type 2 diabetes mellitus
     Dosage: FREQUENCY : WEEKLY;?
     Route: 058
     Dates: start: 20220805, end: 20220805
  2. ATORVASTATIN [Concomitant]
     Active Substance: ATORVASTATIN
  3. BACLOFEN [Concomitant]
     Active Substance: BACLOFEN
  4. FARXIGA [Concomitant]
     Active Substance: DAPAGLIFLOZIN PROPANEDIOL
  5. DULOXETINE [Concomitant]
     Active Substance: DULOXETINE
  6. BASAGLAR [Concomitant]
     Active Substance: INSULIN GLARGINE
  7. LOSARTAN [Concomitant]
     Active Substance: LOSARTAN
  8. PREGABALIN [Concomitant]
     Active Substance: PREGABALIN

REACTIONS (6)
  - Rash [None]
  - Injection related reaction [None]
  - Dyspnoea [None]
  - Chest pain [None]
  - Throat tightness [None]
  - Vomiting [None]

NARRATIVE: CASE EVENT DATE: 20220805
